FAERS Safety Report 15311164 (Version 1)
Quarter: 2018Q3

REPORT INFORMATION
  Report Type: Spontaneous
  Country: US (occurrence: US)
  Receive Date: 20180814
  Receipt Date: 20180814
  Transmission Date: 20181010
  Serious: No
  Sender: FDA-Public Use
  Company Number: None

PATIENT
  Age: 68 Year
  Sex: Male

DRUGS (20)
  1. VALSARTAN TABLETS [Suspect]
     Active Substance: VALSARTAN
     Indication: CARDIAC FAILURE
     Route: 048
     Dates: end: 20180704
  2. TAMSULOSIN [Concomitant]
     Active Substance: TAMSULOSIN
  3. ASPIRIN. [Concomitant]
     Active Substance: ASPIRIN
  4. FINASTERIDE. [Concomitant]
     Active Substance: FINASTERIDE
  5. CALCITRIOL. [Concomitant]
     Active Substance: CALCITRIOL
  6. SPIRONOLACTONE. [Suspect]
     Active Substance: SPIRONOLACTONE
  7. CALCIUM CITRATE [Concomitant]
     Active Substance: CALCIUM CITRATE
  8. NITROSTAT [Concomitant]
     Active Substance: NITROGLYCERIN
  9. DULOXETINE. [Concomitant]
     Active Substance: DULOXETINE
  10. PLAVIX [Concomitant]
     Active Substance: CLOPIDOGREL BISULFATE
  11. ATORVASTATIN [Concomitant]
     Active Substance: ATORVASTATIN
  12. LOSARTAN. [Concomitant]
     Active Substance: LOSARTAN
  13. RANEXA [Concomitant]
     Active Substance: RANOLAZINE
  14. GLIPIZIDE. [Concomitant]
     Active Substance: GLIPIZIDE
  15. D VITAMINS [Concomitant]
  16. VALSARTAN TABLETS [Suspect]
     Active Substance: VALSARTAN
     Indication: HYPERTENSION
     Route: 048
     Dates: end: 20180704
  17. METOPROLOL SUCCINATE. [Concomitant]
     Active Substance: METOPROLOL SUCCINATE
  18. OXYCODONE [Concomitant]
     Active Substance: OXYCODONE
  19. GABAPENTIN. [Concomitant]
     Active Substance: GABAPENTIN
  20. FUROSEMIDE. [Concomitant]
     Active Substance: FUROSEMIDE

REACTIONS (3)
  - Visual impairment [None]
  - Headache [None]
  - Heart rate irregular [None]
